FAERS Safety Report 7621108-3 (Version None)
Quarter: 2011Q3

REPORT INFORMATION
  Report Type: 
  Country: None (occurrence: None)
  Receive Date: 20110719
  Receipt Date: 20100720
  Transmission Date: 20111222
  Serious: No
  Sender: FDA-Public Use
  Company Number: US-KINGPHARMUSA00001-K201000906

PATIENT
  Age: 40 Year
  Sex: Female

DRUGS (2)
  1. LEVOXYL [Suspect]
     Indication: FAMILIAL RISK FACTOR
  2. LEVOXYL [Suspect]
     Indication: FATIGUE
     Dosage: 88 MCG, UNK
     Route: 048
     Dates: start: 20050101

REACTIONS (11)
  - LETHARGY [None]
  - HEART RATE IRREGULAR [None]
  - LOSS OF LIBIDO [None]
  - FEELING ABNORMAL [None]
  - DRUG INEFFECTIVE [None]
  - ALOPECIA [None]
  - NIGHT SWEATS [None]
  - PAIN IN EXTREMITY [None]
  - INSOMNIA [None]
  - CONDITION AGGRAVATED [None]
  - IRRITABILITY [None]
